FAERS Safety Report 9401570 (Version 1)
Quarter: 2013Q3

REPORT INFORMATION
  Report Type: Other
  Country: US (occurrence: US)
  Receive Date: 20130716
  Receipt Date: 20130716
  Transmission Date: 20140515
  Serious: Yes (Death)
  Sender: FDA-Public Use
  Company Number: US-SHIRE-ALL1-2013-04731

PATIENT
  Sex: Male

DRUGS (1)
  1. PENTASA [Suspect]
     Indication: COLITIS ULCERATIVE
     Dosage: 1000 MG (TWO 500 MG CAPSULES), 4X/DAY:QID
     Route: 048
     Dates: start: 201301, end: 201306

REACTIONS (1)
  - Death [Fatal]
